FAERS Safety Report 4715074-8 (Version None)
Quarter: 2005Q3

REPORT INFORMATION
  Report Type: 
  Country: None (occurrence: None)
  Receive Date: 20050715
  Receipt Date: 20050709
  Transmission Date: 20060218
  Serious: Yes (Hospitalization)
  Sender: FDA-Public Use
  Company Number: US-BRISTOL-MYERS SQUIBB COMPANY-13031695

PATIENT
  Age: 72 Year
  Sex: Male
  Weight: 65 kg

DRUGS (8)
  1. CETUXIMAB [Suspect]
     Indication: PANCREATIC CARCINOMA
     Dosage: 250MG/M2
     Route: 042
     Dates: start: 20050705, end: 20050705
  2. BEVACIZUMAB [Suspect]
     Indication: PANCREATIC CARCINOMA
     Route: 042
     Dates: start: 20050705, end: 20050705
  3. GEMCITABINE [Suspect]
     Indication: PANCREATIC CARCINOMA
     Route: 042
     Dates: start: 20050705, end: 20050705
  4. FENTANYL [Concomitant]
  5. MILK OF MAGNESIA [Concomitant]
  6. PHENERGAN [Concomitant]
  7. SENOKOT [Concomitant]
  8. ZOFRAN [Concomitant]

REACTIONS (1)
  - CEREBRAL ISCHAEMIA [None]
